FAERS Safety Report 24942970 (Version 1)
Quarter: 2025Q1

REPORT INFORMATION
  Report Type: Spontaneous
  Country: US (occurrence: US)
  Receive Date: 20250207
  Receipt Date: 20250207
  Transmission Date: 20250409
  Serious: Yes (Other)
  Sender: THE MENTHOLATUM COMPANY
  Company Number: US-The Mentholatum Company-2170675

PATIENT
  Sex: Male

DRUGS (1)
  1. EQUATE COOL AND HEAT EXTRA STRENGTH [Suspect]
     Active Substance: MENTHOL
     Indication: Pain
     Dates: start: 20250120, end: 20250120

REACTIONS (2)
  - Erythema [Recovered/Resolved]
  - Burning sensation [Recovered/Resolved]

NARRATIVE: CASE EVENT DATE: 20250120
